FAERS Safety Report 8837968 (Version 3)
Quarter: 2012Q4

REPORT INFORMATION
  Report Type: Report from Study
  Country: US (occurrence: US)
  Receive Date: 20121012
  Receipt Date: 20121218
  Transmission Date: 20130627
  Serious: Yes (Other)
  Sender: FDA-Public Use
  Company Number: US-JNJFOC-20121003180

PATIENT
  Age: 51 Year
  Sex: Female
  Weight: 68.95 kg

DRUGS (5)
  1. LEFLUNOMIDE [Concomitant]
     Indication: PROPHYLAXIS
  2. VITALITY FOR LIFE FIBREWISE [Concomitant]
     Indication: NUTRITIONAL SUPPORT
  3. LIFEPAK [Concomitant]
     Indication: VITAMIN SUPPLEMENTATION
  4. SIMPONI [Suspect]
     Indication: RHEUMATOID ARTHRITIS
     Route: 058
     Dates: start: 20100101
  5. ETODOLAC [Concomitant]
     Indication: ANTIINFLAMMATORY THERAPY

REACTIONS (9)
  - Systemic lupus erythematosus [Not Recovered/Not Resolved]
  - Influenza [Recovering/Resolving]
  - Menopause [Not Recovered/Not Resolved]
  - Fatigue [Not Recovered/Not Resolved]
  - Feeling abnormal [Not Recovered/Not Resolved]
  - Disturbance in attention [Not Recovered/Not Resolved]
  - Pruritus [Not Recovered/Not Resolved]
  - Headache [Not Recovered/Not Resolved]
  - Therapeutic response decreased [Not Recovered/Not Resolved]
